FAERS Safety Report 8761341 (Version 7)
Quarter: 2016Q4

REPORT INFORMATION
  Report Type: Spontaneous
  Country: US (occurrence: US)
  Receive Date: 20120830
  Receipt Date: 20161107
  Transmission Date: 20170207
  Serious: Yes (Hospitalization, Disabling, Other)
  Sender: FDA-Public Use
  Company Number: US-009507513-1202USA02458

PATIENT
  Sex: Female
  Weight: 89.8 kg

DRUGS (4)
  1. FOSAMAX [Suspect]
     Active Substance: ALENDRONATE SODIUM
     Dosage: 70 MG, QW
     Route: 048
  2. CALCIUM (UNSPECIFIED) [Concomitant]
     Active Substance: CALCIUM
     Indication: OSTEOPOROSIS
     Dosage: UNK
     Route: 065
  3. FOSAMAX [Suspect]
     Active Substance: ALENDRONATE SODIUM
     Indication: OSTEOPOROSIS
     Dosage: 10 MG, QD
     Route: 048
  4. VITAMIN D [Concomitant]
     Active Substance: CHOLECALCIFEROL
     Indication: OSTEOPOROSIS
     Route: 065

REACTIONS (41)
  - Scapula fracture [Unknown]
  - Vascular calcification [Unknown]
  - Chapped lips [Unknown]
  - Osteoarthritis [Unknown]
  - Tendon disorder [Unknown]
  - Pubis fracture [Unknown]
  - Low turnover osteopathy [Not Recovered/Not Resolved]
  - Gravitational oedema [Unknown]
  - Traction [Unknown]
  - Limb discomfort [Unknown]
  - Femur fracture [Not Recovered/Not Resolved]
  - Pubis fracture [Unknown]
  - Tooth disorder [Unknown]
  - Psoriasis [Unknown]
  - Limb asymmetry [Unknown]
  - Skin lesion [Unknown]
  - Osteoporosis [Unknown]
  - Dehydration [Unknown]
  - Osteoarthritis [Unknown]
  - Fibula fracture [Unknown]
  - Spinal osteoarthritis [Unknown]
  - Pain [Unknown]
  - Hypothyroidism [Unknown]
  - Tooth disorder [Unknown]
  - Hand fracture [Unknown]
  - Blood pressure increased [Unknown]
  - Back pain [Not Recovered/Not Resolved]
  - Constipation [Unknown]
  - Fall [Unknown]
  - Musculoskeletal disorder [Unknown]
  - Osteoarthritis [Unknown]
  - Fungal infection [Unknown]
  - Rib fracture [Recovering/Resolving]
  - Arthralgia [Unknown]
  - Humerus fracture [Unknown]
  - Bone cyst [Unknown]
  - Phlebolith [Unknown]
  - Erythema [Unknown]
  - Femur fracture [Not Recovered/Not Resolved]
  - Pelvic fracture [Unknown]
  - Tooth disorder [Unknown]

NARRATIVE: CASE EVENT DATE: 1996
